FAERS Safety Report 4795318-7 (Version None)
Quarter: 2005Q4

REPORT INFORMATION
  Report Type: 
  Country: None (occurrence: None)
  Receive Date: 20051012
  Receipt Date: 20051003
  Transmission Date: 20060501
  Serious: Yes (Other)
  Sender: FDA-Public Use
  Company Number: 2005-09-0927

PATIENT
  Age: 46 Year
  Sex: Female

DRUGS (4)
  1. ZELITREX [Suspect]
     Route: 048
  2. ZOVIRAX [Suspect]
  3. INTRON A [Suspect]
     Dosage: 1.5MCK PER DAY
  4. REBETOL [Suspect]
     Route: 048

REACTIONS (4)
  - DRUG INTERACTION [None]
  - LEUKOPENIA [None]
  - MENORRHAGIA [None]
  - THROMBOCYTOPENIA [None]
